FAERS Safety Report 22150321 (Version 2)
Quarter: 2023Q2

REPORT INFORMATION
  Report Type: Report from Study
  Country: US (occurrence: US)
  Receive Date: 20230329
  Receipt Date: 20230427
  Transmission Date: 20230721
  Serious: Yes (Hospitalization, Other)
  Sender: FDA-Public Use
  Company Number: US-EXELIXIS-CABO-23061582

PATIENT
  Age: 73 Year
  Sex: Female
  Weight: 62.2 kg

DRUGS (32)
  1. CABOMETYX [Suspect]
     Active Substance: CABOZANTINIB S-MALATE
     Indication: Papillary renal cell carcinoma
     Dosage: 60 MG, QD
     Dates: start: 20221213, end: 20221227
  2. CABOMETYX [Suspect]
     Active Substance: CABOZANTINIB S-MALATE
     Dosage: 40 MG, QD
     Dates: start: 20230201, end: 20230314
  3. CABOMETYX [Suspect]
     Active Substance: CABOZANTINIB S-MALATE
     Dosage: UNK
     Dates: start: 20230404
  4. OPDIVO [Suspect]
     Active Substance: NIVOLUMAB
     Indication: Papillary renal cell carcinoma
     Dosage: UNK, Q2WEEKS
     Route: 042
     Dates: start: 20221213, end: 20221227
  5. OPDIVO [Suspect]
     Active Substance: NIVOLUMAB
     Dosage: UNK, Q2WEEKS
     Route: 042
     Dates: start: 20230201, end: 20230314
  6. IRON [Concomitant]
     Active Substance: IRON
  7. ELIQUIS [Concomitant]
     Active Substance: APIXABAN
  8. VITAMIN B COMPLEX WITH C [Concomitant]
     Active Substance: ASCORBIC ACID\CALCIUM PANTOTHENATE\CYANOCOBALAMIN\NIACINAMIDE\PYRIDOXINE HYDROCHLORIDE\RIBOFLAVIN\TH
  9. FISH OIL\OMEGA-3 FATTY ACIDS [Concomitant]
     Active Substance: FISH OIL\OMEGA-3 FATTY ACIDS
  10. HERBALS\TURMERIC [Concomitant]
     Active Substance: HERBALS\TURMERIC
  11. COLACE [Concomitant]
     Active Substance: DOCUSATE SODIUM
  12. VITAMIN E [Concomitant]
     Active Substance: .ALPHA.-TOCOPHEROL
  13. CARVEDILOL [Concomitant]
     Active Substance: CARVEDILOL
  14. ONDANSETRON HYDROCHLORIDE [Concomitant]
     Active Substance: ONDANSETRON HYDROCHLORIDE
  15. PROCHLORPERAZINE [Concomitant]
     Active Substance: PROCHLORPERAZINE
  16. TENORMIN [Concomitant]
     Active Substance: ATENOLOL
  17. VITAMINS [Concomitant]
     Active Substance: VITAMINS
  18. TYLENOL [Concomitant]
     Active Substance: ACETAMINOPHEN
     Indication: Pain
  19. VITAMIN D3 [Concomitant]
     Active Substance: CHOLECALCIFEROL
  20. FERROUS SULFATE [Concomitant]
     Active Substance: FERROUS SULFATE
  21. ADVIL [Concomitant]
     Active Substance: IBUPROFEN
     Indication: Pain
  22. MOTRIN [Concomitant]
     Active Substance: IBUPROFEN
     Indication: Pain
  23. PROBIOTICS NOS [Concomitant]
     Active Substance: PROBIOTICS NOS
  24. EMLA [Concomitant]
     Active Substance: LIDOCAINE\PRILOCAINE
     Indication: Pain
  25. VITAMINS [Concomitant]
     Active Substance: VITAMINS
  26. ZOFRAN [Concomitant]
     Active Substance: ONDANSETRON HYDROCHLORIDE
  27. ROXICODONE [Concomitant]
     Active Substance: OXYCODONE HYDROCHLORIDE
     Indication: Pain
  28. COMPAZINE [Concomitant]
     Active Substance: PROCHLORPERAZINE MALEATE
  29. METANX [Concomitant]
     Active Substance: LEVOMEFOLATE CALCIUM\METHYLCOBALAMIN\PYRIDOXAL PHOSPHATE ANHYDROUS
  30. COREG [Concomitant]
     Active Substance: CARVEDILOL
  31. SODIUM CHLORIDE [Concomitant]
     Active Substance: SODIUM CHLORIDE
  32. DECADRON [Concomitant]
     Active Substance: DEXAMETHASONE

REACTIONS (21)
  - Acute kidney injury [Unknown]
  - Thrombocytopenia [Unknown]
  - Autoimmune myocarditis [Recovering/Resolving]
  - Myositis [Unknown]
  - Fall [Unknown]
  - Joint dislocation [Unknown]
  - Autoimmune hepatitis [Recovering/Resolving]
  - Acute sinusitis [Recovered/Resolved]
  - Chronic sinusitis [Recovered/Resolved]
  - Insomnia [Unknown]
  - Blood calcium increased [Recovered/Resolved]
  - Anaemia [Unknown]
  - Nausea [Recovering/Resolving]
  - Diarrhoea [Not Recovered/Not Resolved]
  - Hypertension [Recovering/Resolving]
  - Taste disorder [Not Recovered/Not Resolved]
  - Weight decreased [Recovering/Resolving]
  - Decreased appetite [Unknown]
  - Escherichia urinary tract infection [Unknown]
  - Oedema peripheral [Recovered/Resolved]
  - Vomiting [Recovering/Resolving]

NARRATIVE: CASE EVENT DATE: 20221224
